FAERS Safety Report 8314197-4 (Version None)
Quarter: 2012Q2

REPORT INFORMATION
  Report Type: 
  Country: None (occurrence: None)
  Receive Date: 20120426
  Receipt Date: 20120423
  Transmission Date: 20120825
  Serious: Yes (Hospitalization)
  Sender: FDA-Public Use
  Company Number: JP-PFIZER INC-2012074627

PATIENT
  Age: 73 Year
  Sex: Female
  Weight: 48.4 kg

DRUGS (14)
  1. ACTOS [Concomitant]
     Indication: DIABETES MELLITUS
     Dosage: UNK
     Route: 048
  2. JANUVIA [Concomitant]
     Indication: DIABETES MELLITUS
     Dosage: UNK
     Route: 048
     Dates: start: 20110223
  3. CARVEDILOL [Concomitant]
     Indication: HYPERTENSION
     Dosage: UNK
     Route: 048
  4. LAC B [Concomitant]
     Indication: DIABETIC GASTROENTEROPATHY
     Dosage: UNK
     Route: 048
  5. TANNALBIN [Concomitant]
     Indication: DIABETIC GASTROENTEROPATHY
     Dosage: UNK
     Route: 048
     Dates: start: 20110223
  6. SELTOUCH [Concomitant]
     Indication: OSTEOARTHRITIS
     Dosage: UNK
     Route: 062
  7. APRONAL/CAFFEINE/PARACETAMOL/PROPYPHENAZONE [Concomitant]
     Indication: OSTEOARTHRITIS
     Dosage: UNK
     Dates: start: 20110223
  8. AMLODIPINE [Concomitant]
     Indication: HYPERTENSION
     Dosage: UNK
     Route: 048
  9. LANSOPRAZOLE [Concomitant]
     Indication: GASTROOESOPHAGEAL REFLUX DISEASE
     Dosage: UNK
     Route: 048
  10. METFORMIN HCL [Concomitant]
     Indication: DIABETES MELLITUS
     Dosage: UNK
     Route: 048
     Dates: end: 20110222
  11. AMARYL [Concomitant]
     Indication: DIABETES MELLITUS
     Dosage: UNK
     Route: 048
     Dates: end: 20110222
  12. LOSARTAN POTASSIUM AND HYDROCHLOROTHIAZIDE [Concomitant]
     Indication: HYPERTENSION
     Dosage: UNK
     Route: 048
  13. PANCREAZE [Concomitant]
     Indication: DIABETIC GASTROENTEROPATHY
     Dosage: UNK
     Route: 048
  14. ATORVASTATIN CALCIUM [Suspect]
     Indication: HYPERCHOLESTEROLAEMIA
     Dosage: 10 MG, 1X/DAY
     Route: 048
     Dates: start: 20101208

REACTIONS (1)
  - BACK PAIN [None]
